FAERS Safety Report 5386210-8 (Version None)
Quarter: 2007Q3

REPORT INFORMATION
  Report Type: 
  Country: None (occurrence: None)
  Receive Date: 20070713
  Receipt Date: 20070706
  Transmission Date: 20080115
  Serious: Yes (Other)
  Sender: FDA-Public Use
  Company Number: PHEH2005US11342

PATIENT
  Age: 81 Year
  Sex: Female

DRUGS (1)
  1. GENTEAL MODERATE LUBRICANT EYE DROPS (NVO) [Suspect]
     Indication: DRY EYE
     Dosage: 1-2 GTT, ONCE/SINGLE
     Dates: start: 20051009, end: 20051009

REACTIONS (6)
  - CONDITION AGGRAVATED [None]
  - EYE PAIN [None]
  - EYE PRURITUS [None]
  - FALL [None]
  - HEADACHE [None]
  - OCULAR HYPERAEMIA [None]
